FAERS Safety Report 5273240-X (Version None)
Quarter: 2007Q1

REPORT INFORMATION
  Report Type: 
  Country: None (occurrence: None)
  Receive Date: 20070319
  Receipt Date: 20070307
  Transmission Date: 20070707
  Serious: Yes (Hospitalization)
  Sender: FDA-Public Use
  Company Number: 200505IM000191

PATIENT
  Age: 70 Year
  Sex: Male
  Weight: 92.5338 kg

DRUGS (12)
  1. INTERFERON GAMMA-1B [Suspect]
     Indication: IDIOPATHIC PULMONARY FIBROSIS
     Dosage: 200 UG, TIW, SUBCUTANEOUS
     Route: 058
     Dates: start: 20040120, end: 20050507
  2. INTERFERON GAMMA-1B [Suspect]
     Indication: IDIOPATHIC PULMONARY FIBROSIS
     Dosage: 200 UG, TIW, SUBCUTANEOUS
     Route: 058
     Dates: start: 20050601
  3. ALBUTEROL [Concomitant]
  4. FLONASE [Concomitant]
  5. IPRATROPIUM BROMIDE [Concomitant]
  6. OXYGEN [Concomitant]
  7. MUCINEX [Concomitant]
  8. LIPITOR [Concomitant]
  9. MULTI-VITAMIN [Concomitant]
  10. LEVOTHYROXINE SODIUM [Concomitant]
  11. ACTOS [Concomitant]
  12. ATENOLOL [Concomitant]

REACTIONS (3)
  - CAROTID ARTERY OCCLUSION [None]
  - CAROTID ARTERY STENOSIS [None]
  - DIZZINESS [None]
